FAERS Safety Report 9015245 (Version 1)
Quarter: 2013Q1

REPORT INFORMATION
  Report Type: Spontaneous
  Country: US (occurrence: None)
  Receive Date: 20130109
  Receipt Date: 20130109
  Transmission Date: 20140127
  Serious: Yes (Disabling, Other)
  Sender: FDA-Public Use
  Company Number: None

PATIENT
  Sex: Female

DRUGS (3)
  1. SUBOXONE [Suspect]
     Indication: PAIN
  2. SUBOXONE [Suspect]
     Indication: DRUG DEPENDENCE
  3. SUBOXONE FILM [Concomitant]

REACTIONS (5)
  - Withdrawal syndrome [None]
  - Aphagia [None]
  - Insomnia [None]
  - Movement disorder [None]
  - Impaired work ability [None]
